FAERS Safety Report 4270646-2 (Version None)
Quarter: 2004Q1

REPORT INFORMATION
  Report Type: 
  Country: None (occurrence: None)
  Receive Date: 20040114
  Receipt Date: 20040105
  Transmission Date: 20041129
  Serious: Yes (Hospitalization)
  Sender: FDA-Public Use
  Company Number: PHHO2004JP00583

PATIENT
  Age: 78 Year
  Sex: Female
  Weight: 46 kg

DRUGS (1)
  1. DIOVAN [Suspect]
     Indication: HYPERTENSION
     Dosage: 80 MG, QD
     Route: 048
     Dates: start: 20021106, end: 20030616

REACTIONS (2)
  - CEREBRAL INFARCTION [None]
  - HEMIPLEGIA [None]
